FAERS Safety Report 10229371 (Version 1)
Quarter: 2014Q2

REPORT INFORMATION
  Report Type: Spontaneous
  Country: PT (occurrence: PT)
  Receive Date: 20140611
  Receipt Date: 20140611
  Transmission Date: 20141212
  Serious: Yes (Life-Threatening, Disabling)
  Sender: FDA-Public Use
  Company Number: PT-BRISTOL-MYERS SQUIBB COMPANY-20962700

PATIENT
  Age: 50 Year
  Sex: Female
  Weight: 68 kg

DRUGS (1)
  1. RISIDON [Suspect]
     Indication: DIABETES MELLITUS
     Route: 048
     Dates: start: 20131010, end: 20140214

REACTIONS (1)
  - Anaemia [Recovered/Resolved]
